FAERS Safety Report 21748176 (Version 1)
Quarter: 2022Q4

REPORT INFORMATION
  Report Type: Spontaneous
  Country: CA (occurrence: CA)
  Receive Date: 20221219
  Receipt Date: 20221219
  Transmission Date: 20230112
  Serious: Yes (Other)
  Sender: FDA-Public Use
  Company Number: CA-PFIZER INC-2020455044

PATIENT
  Age: 41 Year
  Sex: Female
  Weight: 86 kg

DRUGS (5)
  1. RUXIENCE [Suspect]
     Active Substance: RITUXIMAB-PVVR
     Indication: Myositis
     Dosage: 1000 MG AT DAY 1 AND AT DAY 15
     Route: 042
     Dates: start: 20210526, end: 20210607
  2. RUXIENCE [Suspect]
     Active Substance: RITUXIMAB-PVVR
     Dosage: 5000 MG, RETREATMENT DOSE OF 500 MG - 1 DOSE.
     Route: 042
  3. RUXIENCE [Suspect]
     Active Substance: RITUXIMAB-PVVR
     Dosage: 500 MG (1 DOSE )
     Route: 042
     Dates: start: 20220610
  4. RUXIENCE [Suspect]
     Active Substance: RITUXIMAB-PVVR
     Dosage: 500 MG X 1 DOSE
     Route: 042
     Dates: start: 20221208
  5. GRAVOL [Concomitant]
     Active Substance: DIMENHYDRINATE
     Indication: Premedication
     Dosage: 20 MG
     Route: 042

REACTIONS (4)
  - Seizure [Unknown]
  - Off label use [Unknown]
  - Nausea [Unknown]
  - Weight decreased [Unknown]

NARRATIVE: CASE EVENT DATE: 20210526
